FAERS Safety Report 4746515-8 (Version None)
Quarter: 2005Q3

REPORT INFORMATION
  Report Type: 
  Country: None (occurrence: None)
  Receive Date: 20050815
  Receipt Date: 20050801
  Transmission Date: 20060218
  Serious: Yes (Hospitalization)
  Sender: FDA-Public Use
  Company Number: 2005111246

PATIENT
  Age: 72 Year
  Sex: Male
  Weight: 140 kg

DRUGS (10)
  1. NEURONTIN [Suspect]
     Indication: ILL-DEFINED DISORDER
     Dosage: 300 MG, ORAL
     Route: 048
     Dates: end: 20050602
  2. AMITRIPTYLINE HYDROCHLORIDE [Suspect]
     Indication: ILL-DEFINED DISORDER
     Dosage: 50 MG, ORAL
     Route: 048
     Dates: end: 20050602
  3. ALLOPURINOL [Suspect]
     Indication: ILL-DEFINED DISORDER
     Dosage: 200 MG, ORAL
     Route: 048
     Dates: start: 20050530, end: 20050604
  4. ROCEPHIN [Suspect]
     Indication: PYREXIA
     Dosage: 2 GRAM (1 IN1 D), INTRAMUSCULAR
     Route: 030
     Dates: start: 20050527, end: 20050602
  5. RISPERDAL [Suspect]
     Indication: ILL-DEFINED DISORDER
     Dosage: 2 MG (2 MG, 1 IN 1 D), ORAL
     Route: 048
     Dates: end: 20050602
  6. PRAVASTATIN SODIUM [Suspect]
     Indication: ILL-DEFINED DISORDER
     Dosage: 20 MG (20 MG, 1 IN 1 D), ORAL
     Route: 048
     Dates: end: 20050602
  7. FUROSEMIDE [Concomitant]
  8. ZESTRIL [Concomitant]
  9. CORDARONE [Concomitant]
  10. SECTRAL [Concomitant]

REACTIONS (4)
  - ACUTE GENERALISED EXANTHEMATOUS PUSTULOSIS [None]
  - DERMATITIS [None]
  - PRURIGO [None]
  - TOXIC EPIDERMAL NECROLYSIS [None]
